FAERS Safety Report 12524507 (Version 2)
Quarter: 2016Q3

REPORT INFORMATION
  Report Type: Spontaneous
  Country: JP (occurrence: JP)
  Receive Date: 20160704
  Receipt Date: 20160727
  Transmission Date: 20161109
  Serious: Yes (Hospitalization, Other)
  Sender: FDA-Public Use
  Company Number: JP-009507513-1606JPN012914

PATIENT
  Age: 82 Year
  Sex: Female
  Weight: 62.6 kg

DRUGS (7)
  1. SOVALDI [Suspect]
     Active Substance: SOFOSBUVIR
     Indication: HEPATIC CIRRHOSIS
     Dosage: 400 MG, QD (DIVIDED DOSE FREQUENCY UNKNOWN)
     Route: 048
     Dates: start: 20160304, end: 2016
  2. CALONAL [Concomitant]
     Active Substance: ACETAMINOPHEN
     Dosage: DAILY DOSAGE UNKNOWN
     Route: 048
  3. URSO [Concomitant]
     Active Substance: URSODIOL
     Dosage: DAILY DOSE UNKNOWN
     Route: 048
  4. CEFACLOR. [Concomitant]
     Active Substance: CEFACLOR
     Dosage: DAILY DOSE UNKNOWN
     Route: 048
  5. FERROSTEC [Concomitant]
     Active Substance: SODIUM FERROUS CITRATE
     Dosage: DAILY DOSE UNKNOWN
     Route: 048
  6. ETIZOLAM [Concomitant]
     Active Substance: ETIZOLAM
     Dosage: DAILY DOSE UNKNOWN
     Route: 048
  7. REBETOL [Suspect]
     Active Substance: RIBAVIRIN
     Dosage: DAILY DOSAGE UNKNOWN
     Route: 048
     Dates: start: 20160304

REACTIONS (4)
  - Spinal compression fracture [Unknown]
  - Spondylitis [Unknown]
  - Spinal cord paralysis [Unknown]
  - Pseudarthrosis [Unknown]

NARRATIVE: CASE EVENT DATE: 20160401
